FAERS Safety Report 20985230 (Version 1)
Quarter: 2022Q2

REPORT INFORMATION
  Report Type: Other
  Country: US (occurrence: None)
  Receive Date: 20220621
  Receipt Date: 20220621
  Transmission Date: 20220721
  Serious: Yes (Hospitalization)
  Sender: FDA-Public Use
  Company Number: US-ROCHE-2968825

PATIENT
  Age: 34 Year
  Sex: Female

DRUGS (2)
  1. CAPECITABINE [Suspect]
     Active Substance: CAPECITABINE
     Indication: Invasive ductal breast carcinoma
     Dosage: FOR 14 DAYS OF EVERY 21 DAYS CYCLE FOR SIX CYCLES
     Route: 048
  2. DOCETAXEL [Concomitant]
     Active Substance: DOCETAXEL
     Indication: Invasive ductal breast carcinoma
     Dosage: PLUS STUDY DRUG
     Route: 065

REACTIONS (1)
  - Leukoencephalopathy [Recovered/Resolved]
